FAERS Safety Report 13503281 (Version 1)
Quarter: 2017Q2

REPORT INFORMATION
  Report Type: Spontaneous
  Country: US (occurrence: US)
  Receive Date: 20170502
  Receipt Date: 20170502
  Transmission Date: 20170830
  Serious: Yes (Hospitalization)
  Sender: FDA-Public Use
  Company Number: None

PATIENT
  Age: 55 Year
  Sex: Female
  Weight: 67.59 kg

DRUGS (1)
  1. PANTOPRAZOLE [Suspect]
     Active Substance: PANTOPRAZOLE
     Indication: GASTROOESOPHAGEAL REFLUX DISEASE
     Dosage: 1 TABLET BY MOUTH PER DAY  MOUTH AND INJECTION
     Route: 048
     Dates: start: 20170215, end: 20170227

REACTIONS (8)
  - Anxiety [None]
  - Hypersensitivity [None]
  - Dyspnoea [None]
  - Muscle spasms [None]
  - Headache [None]
  - Abdominal pain upper [None]
  - Paraesthesia [None]
  - Chest pain [None]

NARRATIVE: CASE EVENT DATE: 20170218
